FAERS Safety Report 12521020 (Version 1)
Quarter: 2016Q2

REPORT INFORMATION
  Report Type: Spontaneous
  Country: None (occurrence: None)
  Receive Date: 20160630
  Receipt Date: 20160630
  Transmission Date: 20160815
  Serious: Yes (Hospitalization)
  Sender: FDA-Public Use
  Company Number: DP-0613

PATIENT
  Age: 67 Year
  Sex: Female

DRUGS (7)
  1. ATORVASTATIAN [Concomitant]
  2. MULTIVITAMIN [Concomitant]
     Active Substance: VITAMINS
  3. LOSARTAN. [Concomitant]
     Active Substance: LOSARTAN
  4. CALCIUM [Concomitant]
     Active Substance: CALCIUM
  5. LOVAZA [Concomitant]
     Active Substance: OMEGA-3-ACID ETHYL ESTERS
  6. TECNU EXTREME [Suspect]
     Active Substance: HOMEOPATHICS
     Indication: DERMATITIS CONTACT
     Dosage: N/A 2 TIMES 060
     Dates: start: 20160527
  7. SYNTHROID [Concomitant]
     Active Substance: LEVOTHYROXINE SODIUM

REACTIONS (1)
  - Swelling [None]

NARRATIVE: CASE EVENT DATE: 20160530
